FAERS Safety Report 5370638-6 (Version None)
Quarter: 2007Q2

REPORT INFORMATION
  Report Type: 
  Country: None (occurrence: None)
  Receive Date: 20070626
  Receipt Date: 20070615
  Transmission Date: 20071010
  Serious: Yes (Death)
  Sender: FDA-Public Use
  Company Number: HQWYE652915JUN07

PATIENT
  Age: 64 Year
  Sex: Male

DRUGS (9)
  1. INDERAL [Suspect]
     Indication: CARDIAC FAILURE
     Route: 048
     Dates: start: 20070324
  2. FLUTIDE FOR INHALATION [Concomitant]
     Dosage: UNSPECIFIED
     Route: 055
  3. SEREVENT [Concomitant]
     Dosage: UNSPECIFIED
     Route: 055
  4. MUCOSOLVAN [Concomitant]
     Dosage: UNSPECIFIED
     Route: 048
  5. LASIX [Concomitant]
     Dosage: UNSPECIFIED
     Route: 048
  6. PAXIL [Concomitant]
     Dosage: UNSPECIFIED
     Route: 048
  7. GOREI-SAN [Concomitant]
     Dosage: UNSPECIFIED
     Route: 048
  8. SPIRIVA [Concomitant]
     Dosage: UNSPECIFIED
     Route: 055
  9. ALDACTONE [Concomitant]
     Dosage: UNSPECIFIED
     Route: 048

REACTIONS (5)
  - DAYDREAMING [None]
  - DEPRESSED LEVEL OF CONSCIOUSNESS [None]
  - DEPRESSION [None]
  - OBSTRUCTION [None]
  - PULMONARY EMBOLISM [None]
